FAERS Safety Report 6383467-1 (Version None)
Quarter: 2009Q4

REPORT INFORMATION
  Report Type: 
  Country: None (occurrence: None)
  Receive Date: 20091001
  Receipt Date: 20090922
  Transmission Date: 20100525
  Serious: Yes (Hospitalization, Other)
  Sender: FDA-Public Use
  Company Number: PHHO2009ES02699

PATIENT
  Sex: Male
  Weight: 119 kg

DRUGS (5)
  1. RAD 666 RAD+TAB [Suspect]
     Indication: RENAL TRANSPLANT
     Dosage: 5.75 MG
     Route: 048
     Dates: start: 20090130, end: 20090225
  2. RAD 666 RAD+TAB [Suspect]
     Dosage: 5.25MG/DAILY
     Route: 048
     Dates: start: 20090306
  3. RAD 666 RAD+TAB [Suspect]
     Dosage: 4.50 MG/DAY
     Route: 048
  4. MYFORTIC [Suspect]
     Indication: RENAL TRANSPLANT
     Dosage: 1080 MG, DAILY
     Dates: start: 20081008, end: 20090223
  5. MYFORTIC [Suspect]
     Dosage: 540 MG/DAILY
     Route: 048
     Dates: start: 20090302

REACTIONS (10)
  - BLOOD CREATININE INCREASED [None]
  - ENTEROCOCCAL INFECTION [None]
  - HYPOTENSION [None]
  - LEUKOPENIA [None]
  - NEUTROPENIA [None]
  - PROTEINURIA [None]
  - PYREXIA [None]
  - RENAL IMPAIRMENT [None]
  - TRANSPLANT REJECTION [None]
  - URINARY TRACT INFECTION [None]
